FAERS Safety Report 9337525 (Version 3)
Quarter: 2013Q3

REPORT INFORMATION
  Report Type: Spontaneous
  Country: US (occurrence: US)
  Receive Date: 20130607
  Receipt Date: 20130712
  Transmission Date: 20140515
  Serious: Yes (Other)
  Sender: FDA-Public Use
  Company Number: CHPA2013US009437

PATIENT
  Age: 82 Year
  Sex: Female

DRUGS (1)
  1. EX-LAX MAX STR LAX PILLS SENNA [Suspect]
     Indication: CONSTIPATION
     Dosage: 2 DF, UNK
     Route: 048
     Dates: start: 20130604

REACTIONS (4)
  - Postoperative wound infection [Recovered/Resolved]
  - Malaise [Recovered/Resolved]
  - Abdominal pain [Recovered/Resolved]
  - Drug ineffective [Unknown]
